FAERS Safety Report 26006744 (Version 1)
Quarter: 2025Q4

REPORT INFORMATION
  Report Type: Report from Study
  Country: CA (occurrence: CA)
  Receive Date: 20251106
  Receipt Date: 20251106
  Transmission Date: 20260117
  Serious: Yes (Hospitalization)
  Sender: OTSUKA
  Company Number: CA-MMM-Otsuka-6H7AJIUC

PATIENT
  Age: 54 Year
  Sex: Male

DRUGS (1)
  1. TOLVAPTAN [Suspect]
     Active Substance: TOLVAPTAN
     Indication: Congenital cystic kidney disease
     Dosage: 120 MG, DAILY
     Dates: start: 20170201

REACTIONS (1)
  - Renal transplant [Recovered/Resolved]

NARRATIVE: CASE EVENT DATE: 20240125
